FAERS Safety Report 4408051-8 (Version None)
Quarter: 2004Q3

REPORT INFORMATION
  Report Type: 
  Country: None (occurrence: None)
  Receive Date: 20040726
  Receipt Date: 20040614
  Transmission Date: 20050211
  Serious: Yes (Hospitalization)
  Sender: FDA-Public Use
  Company Number: JP-MERCK-0406USA01706

PATIENT
  Age: 69 Year
  Sex: Male

DRUGS (5)
  1. LENDORM [Concomitant]
     Route: 048
     Dates: end: 20040513
  2. PEPCID RPD [Suspect]
     Route: 048
     Dates: start: 20040417, end: 20040513
  3. ADALAT [Concomitant]
     Route: 048
     Dates: end: 20040513
  4. PREDONINE [Concomitant]
     Indication: DERMATOMYOSITIS
     Route: 058
     Dates: start: 20040417, end: 20040513
  5. BAKTAR [Suspect]
     Route: 048
     Dates: end: 20040513

REACTIONS (7)
  - CLOSTRIDIUM COLITIS [None]
  - HAEMATEMESIS [None]
  - MELAENA [None]
  - NEUTROPHIL COUNT DECREASED [None]
  - PNEUMONIA [None]
  - PYREXIA [None]
  - WHITE BLOOD CELL COUNT DECREASED [None]
